FAERS Safety Report 10038177 (Version 4)
Quarter: 2014Q2

REPORT INFORMATION
  Report Type: Spontaneous
  Country: US (occurrence: US)
  Receive Date: 20140326
  Receipt Date: 20140611
  Transmission Date: 20141212
  Serious: Yes (Life-Threatening, Hospitalization, Other)
  Sender: FDA-Public Use
  Company Number: US-MERCK-1403USA011467

PATIENT
  Sex: Female
  Weight: 101.1 kg

DRUGS (1)
  1. JANUVIA [Suspect]
     Indication: TYPE 2 DIABETES MELLITUS
     Dosage: 100 MG, QD
     Route: 048
     Dates: start: 20080828, end: 20110312

REACTIONS (47)
  - Pancreatic neuroendocrine tumour [Unknown]
  - Pancreatectomy [Unknown]
  - Splenectomy [Unknown]
  - Urinary tract infection [Unknown]
  - Knee arthroplasty [Unknown]
  - Hysterectomy [Unknown]
  - Thyroid neoplasm [Unknown]
  - Fibromyalgia [Unknown]
  - Cardiomegaly [Unknown]
  - Blood glucose increased [Unknown]
  - Blood pressure decreased [Unknown]
  - Wrist surgery [Unknown]
  - Blood lactate dehydrogenase increased [Unknown]
  - Foot operation [Unknown]
  - Varicose vein operation [Unknown]
  - Pancreatic insufficiency [Unknown]
  - Heart rate increased [Unknown]
  - Gastrooesophageal reflux disease [Unknown]
  - Heart rate irregular [Unknown]
  - Palpitations [Unknown]
  - Dehydration [Unknown]
  - Postmenopausal haemorrhage [Unknown]
  - Precancerous cells present [Unknown]
  - Adenotonsillectomy [Unknown]
  - Uterine polyp [Unknown]
  - Bunion operation [Unknown]
  - Foot deformity [Unknown]
  - Salpingo-oophorectomy bilateral [Unknown]
  - Fatigue [Unknown]
  - Gastritis [Unknown]
  - Malaise [Unknown]
  - Affective disorder [Unknown]
  - Haemangioma of liver [Unknown]
  - Hepatic steatosis [Unknown]
  - Spinal osteoarthritis [Unknown]
  - Haematochezia [Unknown]
  - Haematemesis [Unknown]
  - Anxiety [Unknown]
  - Mallory-Weiss syndrome [Unknown]
  - Myositis [Unknown]
  - Abdominal pain upper [Recovered/Resolved]
  - Drug ineffective [Unknown]
  - Arthralgia [Unknown]
  - Back pain [Unknown]
  - Myalgia [Unknown]
  - Diarrhoea [Unknown]
  - Transaminases increased [Unknown]
